FAERS Safety Report 25764580 (Version 1)
Quarter: 2025Q3

REPORT INFORMATION
  Report Type: Spontaneous
  Country: US (occurrence: US)
  Receive Date: 20250905
  Receipt Date: 20250905
  Transmission Date: 20251021
  Serious: No
  Sender: DOMPE FARMACEUTICI
  Company Number: US-FARMAPROD-202501-0154

PATIENT
  Sex: Female

DRUGS (24)
  1. OXERVATE [Suspect]
     Active Substance: CENEGERMIN-BKBJ
     Indication: Neurotrophic keratopathy
     Route: 047
     Dates: start: 20241202, end: 20250127
  2. OXERVATE [Suspect]
     Active Substance: CENEGERMIN-BKBJ
     Route: 047
     Dates: start: 20250417
  3. MELATONIN [Concomitant]
     Active Substance: MELATONIN
  4. REFRESH PLUS [Concomitant]
     Active Substance: CARBOXYMETHYLCELLULOSE SODIUM
  5. VITAMINS [Concomitant]
     Active Substance: VITAMINS
  6. ZINC [Concomitant]
     Active Substance: ZINC
  7. VITAMINS [Concomitant]
     Active Substance: VITAMINS
  8. GARLIC [Concomitant]
     Active Substance: GARLIC
  9. LYSINE [Concomitant]
     Active Substance: LYSINE
  10. MAGNESIUM CITRATE [Concomitant]
     Active Substance: MAGNESIUM CITRATE
  11. KELP [Concomitant]
     Active Substance: KELP
  12. POTASSIUM [Concomitant]
     Active Substance: POTASSIUM
  13. LOSARTAN POTASSIUM [Concomitant]
     Active Substance: LOSARTAN POTASSIUM
  14. METOPROLOL SUCCINATE [Concomitant]
     Active Substance: METOPROLOL SUCCINATE
  15. LORATADINE [Concomitant]
     Active Substance: LORATADINE
  16. TRAZODONE HCL [Concomitant]
     Active Substance: TRAZODONE HYDROCHLORIDE
  17. LORAZEPAM [Concomitant]
     Active Substance: LORAZEPAM
  18. HYDROXYZINE HYDROCHLORIDE [Concomitant]
     Active Substance: HYDROXYZINE HYDROCHLORIDE
  19. CITALOPRAM HYDROBROMIDE [Concomitant]
     Active Substance: CITALOPRAM HYDROBROMIDE
  20. BUSPIRONE HCL [Concomitant]
     Active Substance: BUSPIRONE HYDROCHLORIDE
  21. PRED FORTE [Concomitant]
     Active Substance: PREDNISOLONE ACETATE
  22. MURO-128 [Concomitant]
  23. IVIZIA [Concomitant]
     Active Substance: POVIDONE
  24. ELIQUIS [Concomitant]
     Active Substance: APIXABAN

REACTIONS (4)
  - Eye pain [Unknown]
  - Therapy partial responder [Unknown]
  - Dry eye [Unknown]
  - Product dose omission issue [Unknown]
